FAERS Safety Report 8559010 (Version 8)
Quarter: 2014Q2

REPORT INFORMATION
  Report Type: Report from Study
  Country: US (occurrence: US)
  Receive Date: 20120511
  Receipt Date: 20140505
  Transmission Date: 20141212
  Serious: Yes (Hospitalization, Other)
  Sender: FDA-Public Use
  Company Number: US-BRISTOL-MYERS SQUIBB COMPANY-16562365

PATIENT
  Age: 71 Year
  Sex: Male
  Weight: 93.5 kg

DRUGS (19)
  1. IPILIMUMAB [Suspect]
     Indication: MALIGNANT MELANOMA
     Dosage: LAST DOSE:20MAR12,12JUN12.COU:17,10MG/KG OVER 90 MIN ON DAY1 ,1Q12 WEEKS(MAINTENANCE),917MG
     Route: 042
     Dates: start: 20110802
  2. LEUKINE [Suspect]
     Indication: MALIGNANT MELANOMA
     Dosage: LAST DOSE ON 07NOV2011,COURSES:16
     Route: 058
     Dates: start: 20110802
  3. COSYNTROPIN [Concomitant]
     Dosage: SD ONE
     Route: 042
  4. DIPHENHYDRAMINE HCL [Concomitant]
     Dosage: SD ONE
     Route: 048
  5. COLACE CAPS 100 MG [Concomitant]
     Dosage: AS NEEDED
     Route: 048
  6. ENOXAPARIN SODIUM [Concomitant]
     Route: 058
  7. FAMOTIDINE [Concomitant]
     Route: 048
  8. GENTAMICIN SULFATE [Concomitant]
     Dosage: 1-2 DROPS EACH EYE Q4HRS OPH
  9. LORAZEPAM [Concomitant]
     Dosage: QHS?1MG TAB QD
     Route: 048
  10. NAPHAZOLINE HCL [Concomitant]
     Dosage: 1DF=1-2 DROPS EACH EYE
  11. PHENIRAMINE MALEATE [Concomitant]
     Dosage: 1-2 DROPS EACH EYE OPH
  12. OMEPRAZOLE [Concomitant]
     Dosage: 20MG TAB
     Route: 048
  13. ONDANSETRON HCL [Concomitant]
     Dosage: Q8HRS.
     Route: 042
  14. OXYCODONE HCL [Concomitant]
     Dosage: 5-10 MG,Q4 HRS,PRN?5MG TAB
     Route: 048
  15. PREDNISONE [Concomitant]
     Dosage: SD ONE
     Route: 048
  16. POLYMYXIN B [Concomitant]
     Dosage: 1 DROP IN EACH EYE Q3 HRS,OPH
  17. SODIUM CHLORIDE [Concomitant]
     Route: 042
  18. ZOLPIDEM TARTRATE [Concomitant]
     Dosage: 10MG TAB QHS
     Route: 048
  19. ASA [Concomitant]
     Route: 048

REACTIONS (10)
  - Cholecystitis [Not Recovered/Not Resolved]
  - Adrenal insufficiency [Not Recovered/Not Resolved]
  - Syncope [Recovered/Resolved]
  - Dyspnoea [Recovered/Resolved]
  - Fatigue [Recovered/Resolved]
  - Abdominal pain [Recovered/Resolved with Sequelae]
  - Decreased appetite [Unknown]
  - Nausea [Unknown]
  - Pruritus [Unknown]
  - Blood alkaline phosphatase increased [Unknown]
